FAERS Safety Report 7796049-1 (Version None)
Quarter: 2011Q4

REPORT INFORMATION
  Report Type: 
  Country: None (occurrence: None)
  Receive Date: 20111004
  Receipt Date: 20110929
  Transmission Date: 20120403
  Serious: Yes (Life-Threatening, Other)
  Sender: FDA-Public Use
  Company Number: US-ASTRAZENECA-2011SE58861

PATIENT
  Age: 60 Year
  Sex: Male

DRUGS (4)
  1. NEXIUM [Suspect]
     Route: 048
  2. LISINOPRIL [Concomitant]
  3. FISH OIL [Concomitant]
  4. FLAXSEED OIL [Concomitant]

REACTIONS (2)
  - MYOCARDIAL INFARCTION [None]
  - COMA [None]
